FAERS Safety Report 9240680 (Version 1)
Quarter: 2013Q1

REPORT INFORMATION
  Report Type: Spontaneous
  Country: US (occurrence: None)
  Receive Date: 20121120
  Receipt Date: 20121120
  Transmission Date: 20140127
  Serious: No
  Sender: FDA-Public Use
  Company Number: 1000038833

PATIENT
  Sex: Female

DRUGS (1)
  1. VIIBRYD [Suspect]

REACTIONS (7)
  - Dry mouth [None]
  - Mania [None]
  - Disorientation [None]
  - Decreased appetite [None]
  - Hallucination, visual [None]
  - Tachyphrenia [None]
  - Insomnia [None]
